FAERS Safety Report 8384316-2 (Version None)
Quarter: 2012Q2

REPORT INFORMATION
  Report Type: 
  Country: None (occurrence: None)
  Receive Date: 20120524
  Receipt Date: 20111122
  Transmission Date: 20120825
  Serious: No
  Sender: FDA-Public Use
  Company Number: US-BAYER-2011-112299

PATIENT
  Age: 51 Year
  Sex: Male

DRUGS (7)
  1. ALBUTEROL [Concomitant]
  2. NEXAVAR [Suspect]
     Indication: METASTATIC RENAL CELL CARCINOMA
     Dosage: 400 MG, BID
  3. LISINOPRIL [Concomitant]
  4. ASPIRIN [Concomitant]
  5. ORAMORPH SR [Concomitant]
  6. VERAPAMIL [Concomitant]
  7. ACETAMINOPHEN W/ CODEINE [Concomitant]

REACTIONS (1)
  - CHLORACNE [None]
